FAERS Safety Report 6981838-3 (Version None)
Quarter: 2010Q3

REPORT INFORMATION
  Report Type: 
  Country: None (occurrence: None)
  Receive Date: 20100914
  Receipt Date: 20091119
  Transmission Date: 20110219
  Serious: Yes (Other)
  Sender: FDA-Public Use
  Company Number: US-PFIZER INC-2009260064

PATIENT
  Sex: Male
  Weight: 77.098 kg

DRUGS (1)
  1. LYRICA [Suspect]
     Indication: BONE PAIN
     Dosage: UNK
     Dates: start: 20090701

REACTIONS (1)
  - LOSS OF CONSCIOUSNESS [None]
